FAERS Safety Report 17485754 (Version 1)
Quarter: 2020Q1

REPORT INFORMATION
  Report Type: Spontaneous
  Country: US (occurrence: US)
  Receive Date: 20200302
  Receipt Date: 20200302
  Transmission Date: 20200409
  Serious: Yes (Hospitalization)
  Sender: FDA-Public Use
  Company Number: US-EMCURE PHARMACEUTICALS LTD-2020-EPL-0180

PATIENT
  Age: 32 Year
  Sex: Female

DRUGS (7)
  1. BUPIVACAINE. [Concomitant]
     Active Substance: BUPIVACAINE
     Dosage: 0.125 PERCENT
     Route: 008
  2. ALPRAZOLAM. [Suspect]
     Active Substance: ALPRAZOLAM
     Indication: ANXIETY
     Dosage: 0.5 MILLIGRAM
  3. MISOPROSTOL. [Concomitant]
     Active Substance: MISOPROSTOL
     Indication: LABOUR INDUCTION
     Dosage: UNK
  4. FENTANYL. [Concomitant]
     Active Substance: FENTANYL
     Indication: PAIN
     Dosage: ,EPIDURAL INFUSION 2 MICROGRAM/MILLILITER
     Route: 008
  5. BUPIVACAINE. [Concomitant]
     Active Substance: BUPIVACAINE
     Indication: SPINAL ANAESTHESIA
     Dosage: 2.5 MILLIGRAM, SPINAL
  6. OXYTOCIN. [Concomitant]
     Active Substance: OXYTOCIN
     Indication: LABOUR INDUCTION
  7. FENTANYL. [Concomitant]
     Active Substance: FENTANYL
     Dosage: 100 MICROGRAM
     Route: 008

REACTIONS (5)
  - Product administration error [Unknown]
  - Somnolence [Recovered/Resolved]
  - Depressed level of consciousness [Recovered/Resolved]
  - Maternal exposure during pregnancy [Unknown]
  - Overdose [Unknown]
